FAERS Safety Report 4902277-2 (Version None)
Quarter: 2006Q1

REPORT INFORMATION
  Report Type: 
  Country: None (occurrence: None)
  Receive Date: 20060127
  Receipt Date: 20060111
  Transmission Date: 20060701
  Serious: Yes (Other)
  Sender: FDA-Public Use
  Company Number: LIT-002-06-CA

PATIENT
  Age: 81 Year
  Sex: Male

DRUGS (1)
  1. INTRAVENOUS IMMUNE GLOBULINE [Suspect]
     Indication: TOXIC EPIDERMAL NECROLYSIS
     Route: 042

REACTIONS (1)
  - ACUTE MYOCARDIAL INFARCTION [None]
